FAERS Safety Report 5335736-1 (Version None)
Quarter: 2007Q1

REPORT INFORMATION
  Report Type: 
  Country: None (occurrence: None)
  Receive Date: 20070322
  Receipt Date: 20070221
  Transmission Date: 20070707
  Serious: No
  Sender: FDA-Public Use
  Company Number: 2007US000122

PATIENT
  Age: 66 Year
  Sex: Female

DRUGS (6)
  1. VESICARE [Suspect]
     Indication: URINARY INCONTINENCE
     Dosage: 5 MG, UID/QD, ORAL
     Route: 048
  2. NEXIUM [Concomitant]
  3. TRAMADOL HCL [Concomitant]
  4. ALEVE [Concomitant]
  5. LORAZEPAM [Concomitant]
  6. NEURONTIN [Concomitant]

REACTIONS (1)
  - URINARY INCONTINENCE [None]
